FAERS Safety Report 13174510 (Version 1)
Quarter: 2017Q1

REPORT INFORMATION
  Report Type: Spontaneous
  Country: FR (occurrence: FR)
  Receive Date: 20170201
  Receipt Date: 20170201
  Transmission Date: 20170428
  Serious: Yes (Other)
  Sender: FDA-Public Use
  Company Number: FR-PFIZER INC-2017035387

PATIENT
  Age: 31 Year
  Sex: Female

DRUGS (9)
  1. LEDERFOLINE [Suspect]
     Active Substance: LEUCOVORIN CALCIUM
     Dosage: 25 MG, WEEKLY
     Route: 048
     Dates: start: 201607
  2. BLINCYTO [Suspect]
     Active Substance: BLINATUMOMAB
     Dosage: 94 UG, CYCLIC
     Route: 042
  3. BLINCYTO [Suspect]
     Active Substance: BLINATUMOMAB
     Dosage: 94 UG, CYCLIC
     Route: 042
  4. BLINCYTO [Suspect]
     Active Substance: BLINATUMOMAB
     Indication: ACUTE LYMPHOCYTIC LEUKAEMIA
     Dosage: 94 UG, CYCLIC
     Route: 042
     Dates: start: 20160726
  5. BLINCYTO [Suspect]
     Active Substance: BLINATUMOMAB
     Dosage: 94 UG, CYCLIC
     Route: 042
  6. ZELITREX [Suspect]
     Active Substance: VALACYCLOVIR HYDROCHLORIDE
     Dosage: 500 MG, 2X/DAY
     Route: 048
     Dates: start: 201607
  7. BACTRIM [Suspect]
     Active Substance: SULFAMETHOXAZOLE\TRIMETHOPRIM
     Dosage: 1 DF, 3 TIMES WEEKLY
     Route: 048
     Dates: start: 201607
  8. BLINCYTO [Suspect]
     Active Substance: BLINATUMOMAB
     Dosage: 94 UG, CYCLIC
     Route: 042
  9. INEXIUM /01479302/ [Suspect]
     Active Substance: ESOMEPRAZOLE MAGNESIUM
     Dosage: 40 MG, 1X/DAY
     Route: 048
     Dates: start: 201607

REACTIONS (1)
  - Myalgia [Not Recovered/Not Resolved]

NARRATIVE: CASE EVENT DATE: 201612
